FAERS Safety Report 4957829-0 (Version None)
Quarter: 2006Q1

REPORT INFORMATION
  Report Type: 
  Country: None (occurrence: None)
  Receive Date: 20060324
  Receipt Date: 20060310
  Transmission Date: 20060701
  Serious: Yes (Other)
  Sender: FDA-Public Use
  Company Number: 2006036108

PATIENT
  Age: 58 Year
  Sex: Female

DRUGS (2)
  1. OXYTETRACYCLINE [Suspect]
     Indication: UPPER RESPIRATORY TRACT INFECTION
     Dosage: (4 IN 1 D)
     Dates: start: 20060124
  2. ESTRADIOL/NORETHISTERONE ACETATE (ESTRADIOL, NORETHISTERONE ACETATE)) [Suspect]
     Indication: HORMONE REPLACEMENT THERAPY
     Dosage: TRANSDERMAL
     Route: 062
     Dates: start: 19970101

REACTIONS (4)
  - FEELING COLD [None]
  - LOSS OF CONSCIOUSNESS [None]
  - MEMORY IMPAIRMENT [None]
  - MENOPAUSAL SYMPTOMS [None]
